FAERS Safety Report 11749347 (Version 9)
Quarter: 2017Q2

REPORT INFORMATION
  Report Type: Spontaneous
  Country: US (occurrence: US)
  Receive Date: 20151118
  Receipt Date: 20170530
  Transmission Date: 20170829
  Serious: Yes (Congenital Anomaly, Other)
  Sender: FDA-Public Use
  Company Number: PHEH2015US023857

PATIENT
  Sex: Male

DRUGS (3)
  1. ZOFRAN ODT [Suspect]
     Active Substance: ONDANSETRON HYDROCHLORIDE
     Indication: FOETAL EXPOSURE DURING PREGNANCY
     Dosage: MOTHER^S DOSE: 08 MG, UNK
     Route: 064
  2. ONDANSETRON [Suspect]
     Active Substance: ONDANSETRON
     Indication: FOETAL EXPOSURE DURING PREGNANCY
     Dosage: MOTHER^S DOSE: 8 MG, QD
     Route: 064
  3. ZOFRAN [Suspect]
     Active Substance: ONDANSETRON HYDROCHLORIDE
     Indication: FOETAL EXPOSURE DURING PREGNANCY
     Dosage: MOTHER^S DOSE: 8 MG, UNK
     Route: 064

REACTIONS (22)
  - Gastrooesophageal reflux disease [Unknown]
  - Cleft lip and palate [Unknown]
  - Foetal exposure during pregnancy [Unknown]
  - Neonatal respiratory distress syndrome [Unknown]
  - Hypoglycaemia neonatal [Unknown]
  - Eustachian tube dysfunction [Unknown]
  - Pain [Unknown]
  - Dysarthria [Unknown]
  - Congenital anomaly [Unknown]
  - Injury [Unknown]
  - Speech sound disorder [Unknown]
  - Dyspnoea [Unknown]
  - Speech disorder developmental [Unknown]
  - Middle ear effusion [Unknown]
  - Eating disorder [Unknown]
  - Anxiety [Unknown]
  - Tooth disorder [Unknown]
  - Frustration tolerance decreased [Unknown]
  - Deafness [Unknown]
  - Otitis media chronic [Unknown]
  - Emotional distress [Unknown]
  - Velopharyngeal incompetence [Unknown]
